FAERS Safety Report 7457473-X (Version None)
Quarter: 2011Q2

REPORT INFORMATION
  Report Type: 
  Country: None (occurrence: None)
  Receive Date: 20110504
  Receipt Date: 20110426
  Transmission Date: 20111010
  Serious: Yes (Hospitalization, Other)
  Sender: FDA-Public Use
  Company Number: US-ELI_LILLY_AND_COMPANY-US201104007380

PATIENT
  Age: 59 Year
  Sex: Male

DRUGS (2)
  1. CIALIS [Suspect]
     Dosage: 2.5 MG, PRN
  2. CIALIS [Suspect]
     Indication: ERECTILE DYSFUNCTION
     Dosage: 20 MG, PRN

REACTIONS (5)
  - OVERDOSE [None]
  - PANCREATITIS [None]
  - DRUG EFFECT DECREASED [None]
  - DIARRHOEA [None]
  - ABDOMINAL PAIN UPPER [None]
